FAERS Safety Report 11588484 (Version 1)
Quarter: 2015Q4

REPORT INFORMATION
  Report Type: Spontaneous
  Country: US (occurrence: None)
  Receive Date: 20151001
  Receipt Date: 20151001
  Transmission Date: 20160304
  Serious: No
  Sender: FDA-Public Use
  Company Number: None

PATIENT
  Age: 51 Year
  Sex: Female
  Weight: 54.43 kg

DRUGS (5)
  1. HYDROCHLORIQUIN [Concomitant]
  2. D3 [Concomitant]
     Active Substance: 25-HYDROXYCHOLECALCIFEROL, 5-TRANS-
  3. VITAMIN B COMPLEX [Concomitant]
     Active Substance: CYANOCOBALAMIN\DEXPANTHENOL\NIACINAMIDE\PYRIDOXINE HYDROCHLORIDE\RIBOFLAVIN 5^-PHOSPHATE SODIUM\THIAMINE HYDROCHLORIDE\VITAMIN B COMPLEX
  4. ONEXTON [Suspect]
     Active Substance: BENZOYL PEROXIDE\CLINDAMYCIN PHOSPHATE
     Indication: ACNE
     Dosage: APPLY ON SKIN DAILY AS NEEDED
     Route: 061
  5. CYMBALTA [Concomitant]
     Active Substance: DULOXETINE HYDROCHLORIDE

REACTIONS (16)
  - Pharyngeal oedema [None]
  - Swollen tongue [None]
  - Ageusia [None]
  - Abdominal distension [None]
  - Pyrexia [None]
  - Pharyngeal hypoaesthesia [None]
  - Headache [None]
  - Diarrhoea [None]
  - Erythema [None]
  - Swelling face [None]
  - Lacrimation increased [None]
  - Hypoaesthesia oral [None]
  - Eye swelling [None]
  - Peripheral swelling [None]
  - Chest discomfort [None]
  - Gastrointestinal disorder [None]

NARRATIVE: CASE EVENT DATE: 20150926
